FAERS Safety Report 25553169 (Version 1)
Quarter: 2025Q3

REPORT INFORMATION
  Report Type: Spontaneous
  Country: GB (occurrence: None)
  Receive Date: 20250715
  Receipt Date: 20250715
  Transmission Date: 20251020
  Serious: Yes (Life-Threatening, Hospitalization, Disabling, Other)
  Sender: Alvotech
  Company Number: None

PATIENT
  Age: 26 Year
  Sex: Male
  Weight: 68 kg

DRUGS (10)
  1. USTEKINUMAB [Suspect]
     Active Substance: USTEKINUMAB
     Indication: Crohn^s disease
     Route: 065
     Dates: start: 20241221
  2. APIXABAN [Concomitant]
     Active Substance: APIXABAN
  3. CALCIUM\CHOLECALCIFEROL [Concomitant]
     Active Substance: CALCIUM\CHOLECALCIFEROL
  4. FAMOTIDINE [Concomitant]
     Active Substance: FAMOTIDINE
  5. FOLIC ACID [Concomitant]
     Active Substance: FOLIC ACID
  6. PREDNISOLONE [Concomitant]
     Active Substance: PREDNISOLONE
  7. URSODIOL [Concomitant]
     Active Substance: URSODIOL
  8. BENZYDAMINE [Concomitant]
     Active Substance: BENZYDAMINE
  9. PANADOL [Concomitant]
     Active Substance: ACETAMINOPHEN
  10. BOOTS PEPPERMINT INDIGESTION [Concomitant]

REACTIONS (1)
  - Haematology test normal [Unknown]

NARRATIVE: CASE EVENT DATE: 20250429
